FAERS Safety Report 16640508 (Version 3)
Quarter: 2019Q3

REPORT INFORMATION
  Report Type: Spontaneous
  Country: JP (occurrence: JP)
  Receive Date: 20190729
  Receipt Date: 20190829
  Transmission Date: 20191004
  Serious: Yes (Other)
  Sender: FDA-Public Use
  Company Number: JP-B.I. PHARMACEUTICALS,INC./RIDGEFIELD-2019-NB-003415

PATIENT
  Age: 74 Year
  Sex: Female
  Weight: 42 kg

DRUGS (6)
  1. GILOTRIF [Suspect]
     Active Substance: AFATINIB
     Route: 048
     Dates: end: 20170530
  2. GILOTRIF [Suspect]
     Active Substance: AFATINIB
     Route: 048
  3. BETHANECHOL CHLORIDE. [Concomitant]
     Active Substance: BETHANECHOL CHLORIDE
     Indication: PRODUCT USED FOR UNKNOWN INDICATION
     Route: 048
     Dates: start: 200706
  4. AMLODIPINE [Concomitant]
     Active Substance: AMLODIPINE BESYLATE
     Indication: PRODUCT USED FOR UNKNOWN INDICATION
     Route: 048
     Dates: start: 2015
  5. GILOTRIF [Suspect]
     Active Substance: AFATINIB
     Indication: LUNG ADENOCARCINOMA
     Route: 048
     Dates: start: 201704
  6. DISTIGMINE BROMIDE [Concomitant]
     Active Substance: DISTIGMINE BROMIDE
     Indication: PRODUCT USED FOR UNKNOWN INDICATION
     Route: 048
     Dates: start: 200705

REACTIONS (7)
  - Pleural effusion [Recovering/Resolving]
  - Metastases to central nervous system [Not Recovered/Not Resolved]
  - Malignant pleural effusion [Recovering/Resolving]
  - Constipation [Unknown]
  - Diarrhoea [Recovered/Resolved]
  - Cough [Unknown]
  - Cutaneous symptom [Recovered/Resolved]

NARRATIVE: CASE EVENT DATE: 201704
